FAERS Safety Report 21501240 (Version 2)
Quarter: 2022Q4

REPORT INFORMATION
  Report Type: Spontaneous
  Country: CA (occurrence: CA)
  Receive Date: 20221025
  Receipt Date: 20221104
  Transmission Date: 20230112
  Serious: No
  Sender: FDA-Public Use
  Company Number: CA-PFIZER INC-202201216519

PATIENT
  Age: 48 Year
  Sex: Female

DRUGS (3)
  1. ABRILADA [Suspect]
     Active Substance: ADALIMUMAB-AFZB
     Indication: Crohn^s disease
     Dosage: 160MG, WEEK 0 PREFILLED PEN
     Route: 058
     Dates: start: 20221006
  2. ABRILADA [Suspect]
     Active Substance: ADALIMUMAB-AFZB
     Dosage: 80MG, WEEK 2 PREFILLED PEN - NOT YET STARTED
     Route: 058
  3. ABRILADA [Suspect]
     Active Substance: ADALIMUMAB-AFZB
     Dosage: 40MG, MAINTENANCE PREFILLED PEN - NOT YET STARTED
     Route: 058

REACTIONS (4)
  - Device operational issue [Unknown]
  - Product administration error [Unknown]
  - Product communication issue [Unknown]
  - Fatigue [Unknown]

NARRATIVE: CASE EVENT DATE: 20221006
